FAERS Safety Report 8915107 (Version 6)
Quarter: 2014Q2

REPORT INFORMATION
  Report Type: Spontaneous
  Country: US (occurrence: US)
  Receive Date: 20121116
  Receipt Date: 20140423
  Transmission Date: 20141212
  Serious: Yes (Other)
  Sender: FDA-Public Use
  Company Number: US-009507513-1211USA004426

PATIENT
  Sex: Male
  Weight: 191 kg

DRUGS (4)
  1. PROPECIA [Suspect]
     Indication: ANDROGENETIC ALOPECIA
     Dosage: 1 MG, Q24H
     Route: 048
     Dates: start: 19990401, end: 20091215
  2. FINASTERIDE [Suspect]
     Indication: ANDROGENETIC ALOPECIA
     Dosage: 1 MG, UNK
     Route: 048
     Dates: start: 19990401, end: 20091212
  3. FINASTERIDE [Suspect]
     Dosage: 1/4 TABLET
     Route: 048
  4. FINASTERIDE [Suspect]
     Indication: ANDROGENETIC ALOPECIA
     Dosage: 5 MG, UNK
     Dates: start: 20090508, end: 20091215

REACTIONS (22)
  - Cholecystectomy [Unknown]
  - Surgery [Unknown]
  - Blood testosterone decreased [Unknown]
  - Infection [Unknown]
  - Mole excision [Unknown]
  - Nasal septum deviation [Unknown]
  - Cognitive disorder [Not Recovered/Not Resolved]
  - Snoring [Unknown]
  - Obesity [Unknown]
  - Weight increased [Unknown]
  - Sleep apnoea syndrome [Unknown]
  - Hypogonadism [Unknown]
  - Asthenia [Unknown]
  - Fatigue [Unknown]
  - Weight increased [Unknown]
  - Dyspnoea exertional [Unknown]
  - Ataxia [Unknown]
  - Muscular weakness [Unknown]
  - Libido decreased [Unknown]
  - Erectile dysfunction [Unknown]
  - Sexual dysfunction [Unknown]
  - Semen volume decreased [Unknown]
